FAERS Safety Report 7025617-X (Version None)
Quarter: 2010Q4

REPORT INFORMATION
  Report Type: 
  Country: None (occurrence: None)
  Receive Date: 20101003
  Receipt Date: 20100927
  Transmission Date: 20110411
  Serious: Yes (Hospitalization)
  Sender: FDA-Public Use
  Company Number: AU-BRISTOL-MYERS SQUIBB COMPANY-15295892

PATIENT
  Age: 42 Year
  Sex: Female
  Weight: 104 kg

DRUGS (7)
  1. BLINDED: BRIVANIB ALANINATE [Suspect]
     Indication: COLORECTAL CANCER METASTATIC
     Dosage: 8FEB:16FEB10,10MAR:14MAR10,22MAR:16MAY10
     Route: 048
     Dates: start: 20100208, end: 20100516
  2. CETUXIMAB [Suspect]
     Indication: COLORECTAL CANCER METASTATIC
     Dosage: 8FEB:8FEB10 360MG 15FEB:15FEB10 538MG 9MAR:10MAY10 430MG 24MAY:30AUG10 430MG
     Route: 042
     Dates: start: 20100208
  3. BLINDED: PLACEBO [Suspect]
     Indication: COLORECTAL CANCER METASTATIC
     Route: 048
     Dates: start: 20100208, end: 20100516
  4. HYDROCORTISONE CREAM [Concomitant]
     Indication: RASH
     Dates: start: 20100222
  5. MAGMIN [Concomitant]
     Indication: MINERAL SUPPLEMENTATION
     Dates: start: 20100524
  6. DOXYCYCLINE [Concomitant]
     Indication: RASH
     Dates: start: 20100712
  7. PANTOPRAZOLE [Concomitant]

REACTIONS (11)
  - BACK PAIN [None]
  - DECREASED APPETITE [None]
  - DEHYDRATION [None]
  - DIZZINESS [None]
  - DRY MOUTH [None]
  - HAEMOGLOBIN DECREASED [None]
  - HYPOMAGNESAEMIA [None]
  - NAUSEA [None]
  - OEDEMA PERIPHERAL [None]
  - RENAL FAILURE [None]
  - VOMITING [None]
